FAERS Safety Report 4973980-3 (Version None)
Quarter: 2006Q2

REPORT INFORMATION
  Report Type: 
  Country: None (occurrence: None)
  Receive Date: 20060410
  Receipt Date: 20060329
  Transmission Date: 20061013
  Serious: Yes (Other)
  Sender: FDA-Public Use
  Company Number: 2006043829

PATIENT
  Sex: Male
  Weight: 77.1115 kg

DRUGS (3)
  1. ACCURETIC [Suspect]
     Indication: HYPERTENSION
     Dosage: 20/12.5 MG (1 IN 1 D), ORAL
     Route: 048
  2. MULTIVITAMIN (ASCORBIC ACID, ERGOCALCIFEROL, FOLIC ACID, NICOTINAMIDE, [Concomitant]
  3. UNKNOWN BETA BLOCKER (BETA BLOCKING AGENTS) [Concomitant]

REACTIONS (2)
  - ATRIAL FIBRILLATION [None]
  - BLOOD CHOLESTEROL INCREASED [None]
